FAERS Safety Report 6042903-0 (Version None)
Quarter: 2009Q1

REPORT INFORMATION
  Report Type: 
  Country: None (occurrence: None)
  Receive Date: 20090119
  Receipt Date: 20090116
  Transmission Date: 20090719
  Serious: Yes (Life-Threatening, Disabling)
  Sender: FDA-Public Use
  Company Number: A0763798A

PATIENT
  Age: 52 Year
  Sex: Female

DRUGS (2)
  1. ADVAIR DISKUS 100/50 [Suspect]
     Indication: ASTHMA
     Route: 055
     Dates: start: 20080601
  2. TYLENOL (CAPLET) [Concomitant]

REACTIONS (1)
  - DIPLOPIA [None]
